FAERS Safety Report 14128304 (Version 1)
Quarter: 2017Q4

REPORT INFORMATION
  Report Type: Spontaneous
  Country: FR (occurrence: FR)
  Receive Date: 20171026
  Receipt Date: 20171026
  Transmission Date: 20180321
  Serious: Yes (Other)
  Sender: FDA-Public Use
  Company Number: PHHY2017FR154853

PATIENT
  Age: 23 Year
  Sex: Male

DRUGS (2)
  1. RITALINE LP [Suspect]
     Active Substance: METHYLPHENIDATE HYDROCHLORIDE
     Indication: ATTENTION DEFICIT/HYPERACTIVITY DISORDER
     Dosage: 30 MG, BID
     Route: 065
  2. RITALINE LP [Suspect]
     Active Substance: METHYLPHENIDATE HYDROCHLORIDE
     Dosage: 6 DF, QD (2 CAPSULES IN THE MORNING AND 4 CAPSULES AT MIDDAY )
     Route: 065
     Dates: start: 20170928

REACTIONS (3)
  - Incorrect dose administered [Unknown]
  - Somnolence [Unknown]
  - Medication error [Unknown]

NARRATIVE: CASE EVENT DATE: 20170928
